FAERS Safety Report 12553627 (Version 1)
Quarter: 2016Q3

REPORT INFORMATION
  Report Type: Spontaneous
  Country: US (occurrence: US)
  Receive Date: 20160713
  Receipt Date: 20160713
  Transmission Date: 20161109
  Serious: No
  Sender: FDA-Public Use
  Company Number: US-BEH-2016070926

PATIENT
  Age: 58 Year
  Sex: Male
  Weight: 136.51 kg

DRUGS (18)
  1. DIPHENHYDRAMINE. [Concomitant]
     Active Substance: DIPHENHYDRAMINE
  2. MOTRIN [Concomitant]
     Active Substance: IBUPROFEN
  3. ELESTAT [Concomitant]
     Active Substance: EPINASTINE HYDROCHLORIDE
  4. CRESTOR [Concomitant]
     Active Substance: ROSUVASTATIN CALCIUM
  5. LIDOCAINE. [Concomitant]
     Active Substance: LIDOCAINE
  6. EPIPEN [Concomitant]
     Active Substance: EPINEPHRINE
  7. FLONASE [Concomitant]
     Active Substance: FLUTICASONE PROPIONATE
  8. VENTOLIN [Concomitant]
     Active Substance: ALBUTEROL SULFATE
  9. ASPIRIN. [Concomitant]
     Active Substance: ASPIRIN
  10. SODIUM CHLORIDE. [Concomitant]
     Active Substance: SODIUM CHLORIDE
  11. PREDNISONE. [Concomitant]
     Active Substance: PREDNISONE
  12. ACETAMINOPHEN. [Concomitant]
     Active Substance: ACETAMINOPHEN
  13. VALSARTAN. [Concomitant]
     Active Substance: VALSARTAN
  14. MUCINEX [Concomitant]
     Active Substance: GUAIFENESIN
  15. HEPARIN [Concomitant]
     Active Substance: HEPARIN SODIUM
  16. ZEMAIRA [Suspect]
     Active Substance: .ALPHA.1-PROTEINASE INHIBITOR HUMAN
     Indication: PRODUCT USED FOR UNKNOWN INDICATION
     Dosage: 60 MG/KG, QW
     Route: 042
     Dates: start: 20160126
  17. ALBUTEROL                          /00139501/ [Concomitant]
     Active Substance: ALBUTEROL
  18. ALLEGRA [Concomitant]
     Active Substance: FEXOFENADINE HYDROCHLORIDE

REACTIONS (1)
  - Nasopharyngitis [Unknown]

NARRATIVE: CASE EVENT DATE: 201602
